FAERS Safety Report 25135917 (Version 1)
Quarter: 2025Q1

REPORT INFORMATION
  Report Type: Spontaneous
  Country: US (occurrence: US)
  Receive Date: 20250328
  Receipt Date: 20250328
  Transmission Date: 20250409
  Serious: Yes (Other)
  Sender: ORGANON
  Company Number: US-ORGANON-O2503USA001688

PATIENT
  Age: 42 Year
  Sex: Male

DRUGS (4)
  1. PREGNYL [Suspect]
     Active Substance: CHORIOGONADOTROPIN ALFA
     Indication: Infertility male
     Dosage: 2.5 CC, EVERY OTHER DAY (QOD)
     Dates: end: 20250317
  2. WATER FOR INJECTION [Suspect]
     Active Substance: WATER
  3. GONADOTROPIN, CHORIONIC [Suspect]
     Active Substance: CHORIOGONADOTROPIN ALFA
     Indication: Infertility male
     Dosage: 2.5 CC, EVERY OTHER DAY (QOD)
  4. WATER FOR INJECTION [Suspect]
     Active Substance: WATER

REACTIONS (15)
  - Dysentery [Unknown]
  - Ill-defined disorder [Unknown]
  - Post-acute COVID-19 syndrome [Unknown]
  - Blood testosterone decreased [Unknown]
  - Illness [Unknown]
  - Depressed mood [Not Recovered/Not Resolved]
  - Fatigue [Unknown]
  - Asthenia [Unknown]
  - Insomnia [Unknown]
  - Decreased appetite [Unknown]
  - Brain fog [Unknown]
  - Impaired work ability [Unknown]
  - Product dose omission issue [Unknown]
  - Product availability issue [Unknown]
  - Inappropriate schedule of product administration [Unknown]

NARRATIVE: CASE EVENT DATE: 20200301
